FAERS Safety Report 11049118 (Version 1)
Quarter: 2015Q2

REPORT INFORMATION
  Report Type: Spontaneous
  Country: CA (occurrence: CA)
  Receive Date: 20150420
  Receipt Date: 20150420
  Transmission Date: 20150821
  Serious: Yes (Life-Threatening, Hospitalization, Other)
  Sender: FDA-Public Use
  Company Number: CA-ASTRAZENECA-2015SE35892

PATIENT
  Sex: Female

DRUGS (3)
  1. SEROQUEL [Suspect]
     Active Substance: QUETIAPINE FUMARATE
     Indication: INSOMNIA
     Route: 048
  2. ZOPICLONE [Concomitant]
     Active Substance: ZOPICLONE
  3. HORMONE REPLACEMENT THERAPY [Concomitant]
     Active Substance: UNSPECIFIED INGREDIENT

REACTIONS (6)
  - Weight increased [Unknown]
  - Intestinal obstruction [Unknown]
  - Pulmonary embolism [Unknown]
  - Blood cholesterol increased [Unknown]
  - Dry mouth [Unknown]
  - Hyperhidrosis [Unknown]
